FAERS Safety Report 6121567-1 (Version None)
Quarter: 2009Q1

REPORT INFORMATION
  Report Type: 
  Country: None (occurrence: None)
  Receive Date: 20090317
  Receipt Date: 20090312
  Transmission Date: 20090719
  Serious: Yes (Other)
  Sender: FDA-Public Use
  Company Number: US-JNJCH-2009007058

PATIENT
  Age: 35 Year
  Sex: Female
  Weight: 70.8 kg

DRUGS (1)
  1. LISTERINE WHITENING PRE-BRUSH RINSE [Suspect]
     Indication: DENTAL CARE
     Dosage: TEXT:ONE CAPFUL TWICE
     Route: 048
     Dates: start: 20090302, end: 20090303

REACTIONS (3)
  - AGEUSIA [None]
  - APPLICATION SITE ANAESTHESIA [None]
  - PARAESTHESIA ORAL [None]
